FAERS Safety Report 6908343-4 (Version None)
Quarter: 2010Q3

REPORT INFORMATION
  Report Type: 
  Country: None (occurrence: None)
  Receive Date: 20100805
  Receipt Date: 20100726
  Transmission Date: 20110219
  Serious: Yes (Other)
  Sender: FDA-Public Use
  Company Number: US-JNJFOC-20100701039

PATIENT
  Sex: Female
  Weight: 74.57 kg

DRUGS (7)
  1. REMICADE [Suspect]
     Indication: COLITIS ULCERATIVE
     Dosage: SECOND INFUSION
     Route: 042
  2. REMICADE [Suspect]
     Route: 042
  3. ASACOL [Concomitant]
  4. PREDNISONE [Concomitant]
  5. IMODIUM [Concomitant]
  6. FLAGYL [Concomitant]
  7. DOXEPIN [Concomitant]

REACTIONS (8)
  - ANAEMIA [None]
  - COAGULOPATHY [None]
  - CYANOSIS [None]
  - ISCHAEMIA [None]
  - SKIN ULCER [None]
  - SPLINTER HAEMORRHAGES [None]
  - TELANGIECTASIA [None]
  - VASCULITIS [None]
